FAERS Safety Report 24746733 (Version 1)
Quarter: 2024Q4

REPORT INFORMATION
  Report Type: Spontaneous
  Country: JP (occurrence: JP)
  Receive Date: 20241218
  Receipt Date: 20241218
  Transmission Date: 20250115
  Serious: Yes (Hospitalization, Other)
  Sender: GALDERMA
  Company Number: JP-GALDERMA-JP2024018070

PATIENT

DRUGS (3)
  1. NEMOLIZUMAB [Suspect]
     Active Substance: NEMOLIZUMAB
     Indication: Dermatitis atopic
     Dosage: 60 MILLIGRAM, EVERY 4 WEEKS
     Route: 058
     Dates: start: 20240326, end: 20240326
  2. NEMOLIZUMAB [Suspect]
     Active Substance: NEMOLIZUMAB
     Dosage: 60 MILLIGRAM, EVERY 4 WEEKS
     Route: 058
     Dates: start: 2024, end: 2024
  3. NEMOLIZUMAB [Suspect]
     Active Substance: NEMOLIZUMAB
     Dosage: 60 MILLIGRAM, EVERY 4 WEEKS
     Route: 058
     Dates: start: 20241015, end: 20241015

REACTIONS (4)
  - Eczema herpeticum [Unknown]
  - Impetigo [Unknown]
  - Dermatitis atopic [Unknown]
  - Cellulitis [Unknown]

NARRATIVE: CASE EVENT DATE: 20241112
